FAERS Safety Report 5400770-X (Version None)
Quarter: 2007Q3

REPORT INFORMATION
  Report Type: 
  Country: None (occurrence: None)
  Receive Date: 20070730
  Receipt Date: 20070718
  Transmission Date: 20080115
  Serious: Yes (Other)
  Sender: FDA-Public Use
  Company Number: GB-PFIZER INC-2007060315

PATIENT

DRUGS (1)
  1. DETROL [Suspect]

REACTIONS (1)
  - MACULAR DEGENERATION [None]
